FAERS Safety Report 20222361 (Version 1)
Quarter: 2021Q4

REPORT INFORMATION
  Report Type: Spontaneous
  Country: DE (occurrence: DE)
  Receive Date: 20211223
  Receipt Date: 20211223
  Transmission Date: 20220303
  Serious: Yes (Hospitalization, Other)
  Sender: FDA-Public Use
  Company Number: None

PATIENT
  Age: 75 Year
  Sex: Male

DRUGS (9)
  1. Eryfer [Concomitant]
     Indication: Product used for unknown indication
     Dosage: 100 MG, 1-0-0-0
     Route: 048
  2. TORSEMIDE [Concomitant]
     Active Substance: TORSEMIDE
     Indication: Product used for unknown indication
     Dosage: 5 MG, 1-1-0-0
     Route: 048
  3. PANTOPRAZOLE [Concomitant]
     Active Substance: PANTOPRAZOLE
     Indication: Product used for unknown indication
     Dosage: 40 MG, 1-0-1-0
     Route: 048
  4. EZETIMIBE [Concomitant]
     Active Substance: EZETIMIBE
     Indication: Product used for unknown indication
     Dosage: 10 MG, 0-0-1-0
     Route: 048
  5. ATORVASTATIN [Concomitant]
     Active Substance: ATORVASTATIN
     Indication: Product used for unknown indication
     Dosage: 20 MG, 0-0-2-0
     Route: 048
  6. CLOPIDOGREL [Suspect]
     Active Substance: CLOPIDOGREL BISULFATE
     Indication: Product used for unknown indication
     Dosage: 75 MG, 1-0-0-0
     Route: 048
  7. MELPERONE [Concomitant]
     Active Substance: MELPERONE
     Indication: Product used for unknown indication
     Dosage: 25 MG, 0-0-0-1
     Route: 048
  8. METOPROLOL [Concomitant]
     Active Substance: METOPROLOL
     Indication: Product used for unknown indication
     Dosage: 95 MG, 1-0-1-0
     Route: 048
  9. EDOXABAN [Suspect]
     Active Substance: EDOXABAN
     Indication: Product used for unknown indication
     Dosage: 30 MG, 1-0-0-0
     Route: 048

REACTIONS (2)
  - Pallor [Unknown]
  - Haematochezia [Unknown]
